FAERS Safety Report 13628574 (Version 3)
Quarter: 2017Q2

REPORT INFORMATION
  Report Type: Spontaneous
  Country: US (occurrence: US)
  Receive Date: 20170608
  Receipt Date: 20170616
  Transmission Date: 20170830
  Serious: Yes (Other)
  Sender: FDA-Public Use
  Company Number: US-PFIZER INC-2017248024

PATIENT
  Age: 62 Year
  Sex: Female

DRUGS (5)
  1. DIAZEPAM. [Suspect]
     Active Substance: DIAZEPAM
     Dosage: 5 MG, DAILY (OVER THE NEXT TWO MONTHS SUCCESSFULLY DECREASED TO 5 MG/DAY)
  2. OXYCODONE [Suspect]
     Active Substance: OXYCODONE
     Dosage: 80 MG, DAILY (EXTENDED-RELEASE) (OVER THE NEXT TWO MONTHS SUCCESSFULLY DECREASED TO 80 MG/DAY)
  3. OXYCODONE [Suspect]
     Active Substance: OXYCODONE
     Dosage: 80 MG, 4X/DAY (EXTENDED-RELEASE)
  4. DIAZEPAM. [Suspect]
     Active Substance: DIAZEPAM
     Dosage: 20 MG, 1X/DAY
  5. OXYCODONE [Suspect]
     Active Substance: OXYCODONE
     Dosage: 5 MG, EVERY 4 HRS (SHORT ACTING)

REACTIONS (1)
  - Sleep apnoea syndrome [Recovering/Resolving]
